FAERS Safety Report 8033549-3 (Version None)
Quarter: 2012Q1

REPORT INFORMATION
  Report Type: 
  Country: None (occurrence: None)
  Receive Date: 20120110
  Receipt Date: 20111230
  Transmission Date: 20120608
  Serious: Yes (Life-Threatening, Hospitalization, Disabling)
  Sender: FDA-Public Use
  Company Number: US-UCBSA-027238

PATIENT
  Age: 28 Year
  Sex: Female
  Weight: 64.4 kg

DRUGS (16)
  1. ZOFRAN [Concomitant]
     Indication: NAUSEA
     Dosage: 4MG ONCE EVERY 6 HOURS
     Route: 048
  2. SINGULAIR [Concomitant]
     Route: 048
  3. ZOLOFT [Concomitant]
  4. VISTARIL [Concomitant]
     Indication: ANXIETY
     Dosage: 25MG ONCE EVERY 6 HOURS
     Route: 048
  5. IMMUNE GLOBULIN INTRAVENOUS (HUMAN) [Suspect]
     Indication: AMYOTROPHIC LATERAL SCLEROSIS
  6. PHENERGAN [Concomitant]
     Indication: NAUSEA
     Route: 042
  7. NAPROXEN (ALEVE) [Concomitant]
  8. PREDNISONE TAB [Concomitant]
     Indication: CROHN'S DISEASE
     Dates: start: 20090513, end: 20091111
  9. DIPHENOXYLATE HCL + ATROPINE SULFATE [Concomitant]
     Indication: CROHN'S DISEASE
  10. BACLOFEN [Concomitant]
     Dosage: DAILY DOSE: 10 MG
  11. MERCAPTOPURINE [Concomitant]
     Indication: CROHN'S DISEASE
     Dates: start: 20100330, end: 20100422
  12. VITAMIN B-12 [Concomitant]
     Dosage: MONTHLY
     Route: 030
  13. QUESTRAN [Concomitant]
     Dosage: DAILY DOSE: 4 G
     Route: 048
  14. CIMZIA [Suspect]
     Indication: CROHN'S DISEASE
     Route: 058
     Dates: start: 20100601, end: 20110105
  15. PREDNISONE TAB [Concomitant]
     Dosage: TAPER
     Dates: start: 20091118
  16. MERCAPTOPURINE [Concomitant]
     Dates: start: 20100512

REACTIONS (2)
  - AMYOTROPHIC LATERAL SCLEROSIS [None]
  - MENINGITIS ASEPTIC [None]
